FAERS Safety Report 14196554 (Version 2)
Quarter: 2017Q4

REPORT INFORMATION
  Report Type: Spontaneous
  Country: US (occurrence: US)
  Receive Date: 20171116
  Receipt Date: 20171117
  Transmission Date: 20180321
  Serious: Yes (Other)
  Sender: FDA-Public Use
  Company Number: US-NOVOPROD-565012

PATIENT
  Age: 60 Year
  Sex: Male
  Weight: 92.97 kg

DRUGS (5)
  1. METFORMIN [Concomitant]
     Active Substance: METFORMIN HYDROCHLORIDE
     Indication: TYPE 2 DIABETES MELLITUS
     Dosage: DAILY IN THE MORNING
  2. NOVOLOG [Suspect]
     Active Substance: INSULIN ASPART
     Dosage: 40 U, AT NIGHT
     Route: 058
     Dates: start: 20170918
  3. NOVOLOG [Suspect]
     Active Substance: INSULIN ASPART
     Dosage: 45 U, AT NIGHT, AND SLIDING SCALE
     Route: 058
     Dates: start: 20170911, end: 20170917
  4. NOVOLOG MIX 70/30 [Suspect]
     Active Substance: INSULIN ASPART
     Indication: TYPE 2 DIABETES MELLITUS
     Dosage: SLIDING SCALE (11U-16U)
     Route: 058
     Dates: start: 2012
  5. NOVOLOG [Suspect]
     Active Substance: INSULIN ASPART
     Indication: TYPE 2 DIABETES MELLITUS
     Dosage: 55 U, AT NIGHT, AND SLIDING SCALE
     Route: 058
     Dates: start: 2012, end: 20170910

REACTIONS (4)
  - Hypoglycaemia [Recovered/Resolved]
  - Diabetic coma [Recovered/Resolved]
  - Hypoglycaemic seizure [Recovered/Resolved]
  - Hypoglycaemia [Recovered/Resolved]

NARRATIVE: CASE EVENT DATE: 20170809
